FAERS Safety Report 8885664 (Version 5)
Quarter: 2013Q3

REPORT INFORMATION
  Report Type: Report from Study
  Country: US (occurrence: US)
  Receive Date: 20121101
  Receipt Date: 20130829
  Transmission Date: 20140515
  Serious: Yes (Hospitalization)
  Sender: FDA-Public Use
  Company Number: US-PFIZER INC-2012268205

PATIENT
  Age: 44 Year
  Sex: Male
  Weight: 68.49 kg

DRUGS (7)
  1. AXITINIB [Suspect]
     Indication: HEAD AND NECK CANCER
     Dosage: 10 MG, 2X/DAY
     Route: 048
     Dates: start: 20120621, end: 20121011
  2. DOCUSATE SODIUM [Concomitant]
     Dosage: 100 MG, UNK
  3. LEVOTHYROXINE [Concomitant]
     Dosage: 112 UG, UNK
  4. NYSTATIN [Concomitant]
     Dosage: 100000 UNIT/ML
  5. PILOCARPINE [Concomitant]
     Dosage: 5 MG, UNK
  6. PROCHLORPERAZINE MALEATE [Concomitant]
     Dosage: 10 MG, UNK
  7. SENNOSIDES [Concomitant]
     Dosage: 25 MG, UNK

REACTIONS (1)
  - Chest pain [Recovered/Resolved]
